FAERS Safety Report 5134152-5 (Version None)
Quarter: 2006Q4

REPORT INFORMATION
  Report Type: 
  Country: None (occurrence: None)
  Receive Date: 20061024
  Receipt Date: 20061011
  Transmission Date: 20070319
  Serious: Yes (Hospitalization, Other)
  Sender: FDA-Public Use
  Company Number: BE-ABBOTT-06P-013-0346894-00

PATIENT
  Sex: Male
  Weight: 58 kg

DRUGS (5)
  1. KALETRA [Suspect]
     Indication: HIV INFECTION
     Route: 048
     Dates: start: 20040109
  2. KALETRA [Suspect]
     Route: 048
  3. BACTRIM [Concomitant]
     Indication: PROPHYLAXIS
  4. LAMIVUDINE + ZIDOVUDINE [Concomitant]
     Indication: HIV INFECTION
  5. LAMIVUDINE + ZIDOVUDINE [Concomitant]

REACTIONS (19)
  - ANOREXIA [None]
  - ANURIA [None]
  - BRONCHOPNEUMONIA [None]
  - COUGH [None]
  - DEHYDRATION [None]
  - DIARRHOEA [None]
  - GASTROENTERITIS BACTERIAL [None]
  - LABORATORY TEST ABNORMAL [None]
  - LUNG INFILTRATION [None]
  - MICROCYTIC ANAEMIA [None]
  - ODYNOPHAGIA [None]
  - OESOPHAGEAL CANDIDIASIS [None]
  - PNEUMONIA [None]
  - PROTEINURIA [None]
  - PYREXIA [None]
  - RENAL FAILURE ACUTE [None]
  - RENAL TUBULAR NECROSIS [None]
  - SPUTUM DISCOLOURED [None]
  - VOMITING [None]
